FAERS Safety Report 5223337-5 (Version None)
Quarter: 2007Q1

REPORT INFORMATION
  Report Type: 
  Country: None (occurrence: None)
  Receive Date: 20061201
  Receipt Date: 20060908
  Transmission Date: 20070707
  Serious: No
  Sender: FDA-Public Use
  Company Number: 2005PV002361

PATIENT
  Age: 74 Year
  Sex: Female
  Weight: 97.0698 kg

DRUGS (9)
  1. BYETTA [Suspect]
     Indication: DIABETES MELLITUS NON-INSULIN-DEPENDENT
     Dosage: SEE IMAGE
     Route: 058
     Dates: start: 20050921, end: 20051018
  2. BYETTA [Suspect]
     Indication: DIABETES MELLITUS NON-INSULIN-DEPENDENT
     Dosage: SEE IMAGE
     Route: 058
     Dates: start: 20051018, end: 20060113
  3. BYETTA [Suspect]
     Indication: DIABETES MELLITUS NON-INSULIN-DEPENDENT
     Dosage: SEE IMAGE
     Route: 058
     Dates: start: 20060101
  4. BYETTA [Suspect]
  5. NOVOLOG MIX 70/30 [Concomitant]
  6. GLUCOPHAGE [Concomitant]
  7. AMARYL [Concomitant]
  8. NOVOLIN 50/50 [Concomitant]
  9. GLUCOPHAGE [Concomitant]

REACTIONS (12)
  - BLOOD GLUCOSE DECREASED [None]
  - COLD SWEAT [None]
  - DECREASED APPETITE [None]
  - DIARRHOEA [None]
  - DYSPEPSIA [None]
  - FATIGUE [None]
  - FLATULENCE [None]
  - HYPERHIDROSIS [None]
  - NAUSEA [None]
  - SOMNOLENCE [None]
  - TREMOR [None]
  - WEIGHT DECREASED [None]
